FAERS Safety Report 6557313-7 (Version None)
Quarter: 2010Q1

REPORT INFORMATION
  Report Type: 
  Country: None (occurrence: None)
  Receive Date: 20100127
  Receipt Date: 20100127
  Transmission Date: 20100710
  Serious: Yes (Other)
  Sender: FDA-Public Use
  Company Number: None

PATIENT
  Sex: Male
  Weight: 65.7716 kg

DRUGS (2)
  1. PEGASYS [Suspect]
     Indication: HEPATITIS C
     Dosage: 180 MCG/0.5 ML PFS 4X0.5 WEEKLY SQ
     Route: 058
     Dates: start: 20100104
  2. RIBAVIRIN [Suspect]
     Indication: HEPATITIS C
     Dosage: 200 MG 84 BID PO
     Route: 048
     Dates: start: 20100104

REACTIONS (8)
  - BACK PAIN [None]
  - BLADDER DILATATION [None]
  - BLADDER PAIN [None]
  - CYSTITIS NONINFECTIVE [None]
  - DYSURIA [None]
  - POLLAKIURIA [None]
  - URINARY HESITATION [None]
  - URINARY RETENTION [None]
